FAERS Safety Report 7514569-1 (Version None)
Quarter: 2011Q2

REPORT INFORMATION
  Report Type: 
  Country: None (occurrence: None)
  Receive Date: 20110601
  Receipt Date: 20101221
  Transmission Date: 20111010
  Serious: Yes (Hospitalization, Other)
  Sender: FDA-Public Use
  Company Number: US-BAYER-201022211NA

PATIENT
  Age: 21 Year
  Sex: Female
  Weight: 104.31 kg

DRUGS (15)
  1. YASMIN [Suspect]
     Indication: ACNE
  2. PROZAC [Concomitant]
     Dosage: 20 MG, QD
  3. ACCUTANE [Concomitant]
     Indication: ACNE
     Dosage: 40 MG, QD
     Route: 048
     Dates: start: 20070803
  4. CITALOPRAM [Concomitant]
     Dosage: UNK
     Route: 048
     Dates: start: 20070109
  5. FLUOXETINE [Concomitant]
     Dosage: UNK
     Route: 048
     Dates: start: 20070803
  6. AZITHROMYCIN [Concomitant]
     Dosage: UNK
     Route: 048
     Dates: start: 20090223
  7. AMITRIPTYLINE HCL [Concomitant]
     Indication: FIBROMYALGIA
     Dosage: UNK
     Route: 048
     Dates: start: 20081216
  8. CLARAVIS [Concomitant]
     Dosage: UNK
     Route: 048
     Dates: start: 20071204
  9. CALTRATE + D [CALCIUM,VITAMIN D NOS] [Concomitant]
     Dosage: 600 MG, QD
     Route: 048
     Dates: start: 20090727
  10. CALTRATE + D [CALCIUM,VITAMIN D NOS] [Concomitant]
     Dosage: 200 U, QD
     Route: 048
     Dates: start: 20090727
  11. DROSPIRENONE AND ETHINYL ESTRADIOL [Suspect]
     Indication: PRODUCT USED FOR UNKNOWN INDICATION
     Route: 048
     Dates: start: 20080501, end: 20091201
  12. NSAID'S [Concomitant]
     Dosage: UNK
     Dates: start: 20061001
  13. YASMIN [Suspect]
     Indication: CONTRACEPTION
     Dosage: 1 TAB/DAY
     Route: 048
     Dates: start: 20041001, end: 20080401
  14. IRON [IRON] [Concomitant]
     Dosage: 325 MG, TID
     Route: 048
     Dates: start: 20090807
  15. PROZAC [Concomitant]
     Dosage: 30 MG, HS
     Dates: start: 20090727, end: 20090917

REACTIONS (2)
  - CHOLESTEROSIS [None]
  - CHOLECYSTITIS CHRONIC [None]
